FAERS Safety Report 25366798 (Version 1)
Quarter: 2025Q2

REPORT INFORMATION
  Report Type: Spontaneous
  Country: US (occurrence: US)
  Receive Date: 20250528
  Receipt Date: 20250528
  Transmission Date: 20250717
  Serious: No
  Sender: AMNEAL
  Company Number: US-AMNEAL PHARMACEUTICALS-2024-AMRX-03743

PATIENT

DRUGS (1)
  1. PROPRANOLOL HYDROCHLORIDE [Suspect]
     Active Substance: PROPRANOLOL HYDROCHLORIDE
     Indication: Migraine
     Dosage: 40 MG,1 DOSAGE FORM, 1 /DAY
     Route: 065
     Dates: start: 20240705, end: 20240709

REACTIONS (3)
  - Head discomfort [Unknown]
  - Palpitations [Unknown]
  - Product substitution issue [Unknown]
